FAERS Safety Report 15150716 (Version 1)
Quarter: 2018Q3

REPORT INFORMATION
  Report Type: Spontaneous
  Country: US (occurrence: US)
  Receive Date: 20180716
  Receipt Date: 20180716
  Transmission Date: 20181010
  Serious: Yes (Hospitalization)
  Sender: FDA-Public Use
  Company Number: US-ALLERGAN-1835440US

PATIENT
  Age: 27 Year
  Sex: Male

DRUGS (1)
  1. DALBAVANCIN HCL UNK [Suspect]
     Active Substance: DALBAVANCIN HYDROCHLORIDE
     Indication: CELLULITIS
     Route: 065

REACTIONS (1)
  - Pyrexia [Recovering/Resolving]
